FAERS Safety Report 11755459 (Version 2)
Quarter: 2015Q4

REPORT INFORMATION
  Report Type: Spontaneous
  Country: US (occurrence: US)
  Receive Date: 20151119
  Receipt Date: 20151208
  Transmission Date: 20160304
  Serious: No
  Sender: FDA-Public Use
  Company Number: US-GLAXOSMITHKLINE-US2015GSK161875

PATIENT
  Age: 72 Year
  Sex: Female

DRUGS (2)
  1. TANZEUM [Suspect]
     Active Substance: ALBIGLUTIDE
     Indication: TYPE 2 DIABETES MELLITUS
     Dosage: 30 MG, WE
     Dates: start: 201505
  2. TANZEUM [Suspect]
     Active Substance: ALBIGLUTIDE
     Dosage: 30 MG, WE
     Route: 042

REACTIONS (8)
  - Device use error [Unknown]
  - Accidental exposure to product [Unknown]
  - Underdose [Unknown]
  - Device leakage [Unknown]
  - Device breakage [Unknown]
  - Exposure via direct contact [Unknown]
  - Product preparation error [Unknown]
  - Device malfunction [Unknown]

NARRATIVE: CASE EVENT DATE: 20151110
